FAERS Safety Report 23876219 (Version 3)
Quarter: 2024Q4

REPORT INFORMATION
  Report Type: Report from Study
  Country: IN (occurrence: IN)
  Receive Date: 20240520
  Receipt Date: 20241017
  Transmission Date: 20250115
  Serious: Yes (Hospitalization, Other)
  Sender: INCYTE
  Company Number: IN-002147023-NVSC2024IN101669

PATIENT

DRUGS (2)
  1. RUXOLITINIB [Suspect]
     Active Substance: RUXOLITINIB
     Indication: Primary myelofibrosis
     Dosage: 5 MG, BID
     Route: 048
     Dates: start: 20220701
  2. RUXOLITINIB [Suspect]
     Active Substance: RUXOLITINIB
     Dosage: 10 MG, BID
     Route: 048

REACTIONS (24)
  - Atrial fibrillation [Unknown]
  - Bone marrow disorder [Unknown]
  - Dyspnoea [Unknown]
  - Palpitations [Unknown]
  - Cholelithiasis [Unknown]
  - Liver disorder [Unknown]
  - Hepatic cirrhosis [Unknown]
  - Constipation [Unknown]
  - Diabetes mellitus [Unknown]
  - Decreased appetite [Unknown]
  - Heart failure with reduced ejection fraction [Unknown]
  - Hepatic encephalopathy [Unknown]
  - Hypertension [Unknown]
  - Hyponatraemia [Unknown]
  - Hypothyroidism [Unknown]
  - Lethargy [Unknown]
  - Full blood count decreased [Unknown]
  - Model for end stage liver disease score abnormal [Unknown]
  - Positron emission tomogram abnormal [Unknown]
  - Pallor [Unknown]
  - Portal hypertension [Unknown]
  - Off label use [Unknown]
  - Psoriatic arthropathy [Unknown]
  - Anaemia [Unknown]

NARRATIVE: CASE EVENT DATE: 20240501
